FAERS Safety Report 6505967-3 (Version None)
Quarter: 2009Q4

REPORT INFORMATION
  Report Type: 
  Country: None (occurrence: None)
  Receive Date: 20091218
  Receipt Date: 20091208
  Transmission Date: 20100525
  Serious: Yes (Hospitalization)
  Sender: FDA-Public Use
  Company Number: US-ABBOTT-09P-163-0613080-00

PATIENT
  Sex: Male
  Weight: 61.744 kg

DRUGS (7)
  1. HUMIRA [Suspect]
     Indication: DRUG USE FOR UNKNOWN INDICATION
     Dosage: 4 DOSES
  2. REMICADE [Suspect]
     Indication: COLITIS ULCERATIVE
     Route: 042
     Dates: start: 20090402, end: 20090506
  3. REMICADE [Suspect]
     Route: 042
     Dates: start: 20090610
  4. MERCAPTOPURINE [Suspect]
     Indication: COLITIS ULCERATIVE
     Dates: start: 20090602
  5. PREDNISONE [Concomitant]
     Indication: DRUG USE FOR UNKNOWN INDICATION
  6. ACTONEL [Concomitant]
     Indication: BONE DENSITY DECREASED
     Dosage: 150MG DAILY
  7. PURINETHOL [Concomitant]
     Indication: DRUG USE FOR UNKNOWN INDICATION

REACTIONS (7)
  - COLECTOMY [None]
  - DEEP VEIN THROMBOSIS [None]
  - DEMYELINATION [None]
  - DIPLOPIA [None]
  - DRUG INEFFECTIVE [None]
  - PARAESTHESIA [None]
  - PYREXIA [None]
